FAERS Safety Report 6063184-8 (Version None)
Quarter: 2009Q1

REPORT INFORMATION
  Report Type: 
  Country: None (occurrence: None)
  Receive Date: 20090203
  Receipt Date: 20090121
  Transmission Date: 20090719
  Serious: Yes (Hospitalization)
  Sender: FDA-Public Use
  Company Number: ES-ELI_LILLY_AND_COMPANY-ES200901003899

PATIENT
  Age: 75 Year
  Sex: Female

DRUGS (9)
  1. FORTEO [Suspect]
     Indication: OSTEOPOROSIS
     Dosage: 20 UG, UNKNOWN
     Route: 058
     Dates: start: 20090108
  2. CALCIUM [Concomitant]
     Dosage: UNK, UNKNOWN
     Route: 065
  3. DACORTIN [Concomitant]
     Dosage: 30 MG, UNKNOWN
     Route: 065
  4. EFFERALGAN [Concomitant]
     Dosage: UNK, UNKNOWN
     Route: 065
  5. ENALAPRIL MALEATE [Concomitant]
     Dosage: UNK, UNKNOWN
     Route: 065
  6. IBUPROFENE [Concomitant]
     Indication: PAIN
     Dosage: UNK, AS NEEDED
     Route: 065
  7. MESTINON [Concomitant]
     Dosage: UNK, UNKNOWN
     Route: 065
  8. OMEPRAZOLE [Concomitant]
     Dosage: UNK, UNKNOWN
     Route: 065
  9. SEGURIL [Concomitant]
     Dosage: UNK, UNKNOWN
     Route: 065

REACTIONS (3)
  - PYREXIA [None]
  - URINARY TRACT INFECTION VIRAL [None]
  - VIRAL INFECTION [None]
